FAERS Safety Report 12982707 (Version 1)
Quarter: 2016Q4

REPORT INFORMATION
  Report Type: Spontaneous
  Country: FR (occurrence: FR)
  Receive Date: 20161129
  Receipt Date: 20161129
  Transmission Date: 20170207
  Serious: Yes (Hospitalization)
  Sender: FDA-Public Use
  Company Number: FR-ELI_LILLY_AND_COMPANY-FR201611005844

PATIENT
  Age: 55 Year
  Sex: Male

DRUGS (3)
  1. ALIMTA [Suspect]
     Active Substance: PEMETREXED DISODIUM
     Indication: LUNG NEOPLASM MALIGNANT
     Dosage: 1 DF IN ONE COURSE
     Route: 042
     Dates: start: 20160818, end: 20160818
  2. EUPANTOL [Concomitant]
     Active Substance: PANTOPRAZOLE SODIUM
     Dosage: 1 DF, PRN
  3. SOLUPRED                           /00016201/ [Suspect]
     Active Substance: PREDNISOLONE
     Indication: LUNG NEOPLASM MALIGNANT
     Dosage: UNK, UNKNOWN
     Route: 048
     Dates: start: 20160817, end: 20160822

REACTIONS (5)
  - Acute generalised exanthematous pustulosis [Recovered/Resolved]
  - Pancytopenia [Recovering/Resolving]
  - Mixed liver injury [Not Recovered/Not Resolved]
  - Off label use [Unknown]
  - Acute pulmonary oedema [Unknown]

NARRATIVE: CASE EVENT DATE: 2016
